FAERS Safety Report 15659028 (Version 2)
Quarter: 2019Q1

REPORT INFORMATION
  Report Type: Report from Study
  Country: ZA (occurrence: ZA)
  Receive Date: 20181127
  Receipt Date: 20190121
  Transmission Date: 20190417
  Serious: Yes (Disabling)
  Sender: FDA-Public Use
  Company Number: ZA-SAKK-2018SA230966AA

PATIENT
  Age: 37 Year
  Sex: Female

DRUGS (12)
  1. METFORMIN [Concomitant]
     Active Substance: METFORMIN HYDROCHLORIDE
     Dosage: UNK
  2. NUZAK [Concomitant]
     Active Substance: FLUOXETINE HYDROCHLORIDE
     Dosage: 20 MG, QD
     Route: 065
     Dates: start: 20180803
  3. INSULIN GLULISINE [Suspect]
     Active Substance: INSULIN GLULISINE
     Dosage: UNK, 12-14-14
     Route: 065
     Dates: start: 20180803
  4. STILNOX [Concomitant]
     Active Substance: ZOLPIDEM TARTRATE
     Dosage: UNK
  5. GLUCOPHAGE [Concomitant]
     Active Substance: METFORMIN HYDROCHLORIDE
     Dosage: 1000 MG, BID
     Route: 065
     Dates: start: 20180803
  6. ASPAVOR [Concomitant]
     Active Substance: ATORVASTATIN
     Dosage: 10 MG, HS
     Dates: start: 20180917
  7. MELATONIN [Concomitant]
     Active Substance: MELATONIN
     Dosage: 2 MG, QD
     Route: 065
     Dates: start: 20180803
  8. INSULIN GLULISINE [Suspect]
     Active Substance: INSULIN GLULISINE
     Indication: TYPE 2 DIABETES MELLITUS
     Dosage: 12 MG, TID
     Route: 058
     Dates: start: 20180817
  9. TOUJEO [Suspect]
     Active Substance: INSULIN GLARGINE
     Indication: TYPE 2 DIABETES MELLITUS
     Dosage: UNK
     Dates: start: 20170817
  10. TOUJEO [Suspect]
     Active Substance: INSULIN GLARGINE
     Dosage: 35 U, HS
     Route: 065
     Dates: start: 20180803
  11. METFORMIN [Concomitant]
     Active Substance: METFORMIN HYDROCHLORIDE
     Dosage: AS-2 MG
     Dates: start: 20180803
  12. STILNOX [Concomitant]
     Active Substance: ZOLPIDEM TARTRATE
     Dosage: BT-5 MG
     Dates: start: 20180816

REACTIONS (8)
  - Headache [Not Recovered/Not Resolved]
  - Blood glucose decreased [Recovered/Resolved]
  - Diarrhoea [Not Recovered/Not Resolved]
  - Muscle spasms [Not Recovered/Not Resolved]
  - Dyspepsia [Unknown]
  - Abdominal discomfort [Not Recovered/Not Resolved]
  - Pain [Unknown]
  - Malaise [Recovered/Resolved]

NARRATIVE: CASE EVENT DATE: 20180816
